FAERS Safety Report 8515073-4 (Version None)
Quarter: 2012Q3

REPORT INFORMATION
  Report Type: 
  Country: None (occurrence: None)
  Receive Date: 20120705
  Receipt Date: 20120627
  Transmission Date: 20120928
  Serious: Yes (Hospitalization)
  Sender: FDA-Public Use
  Company Number: 2012HGS-003777

PATIENT
  Age: 62 Year
  Sex: Female
  Weight: 85.2762 kg

DRUGS (18)
  1. ACIDOPHILUS (LACTOBACILUS ACIDOPHILUS) (LACTOBACILLUS ACIDOPHILUS) [Concomitant]
  2. LUMIGAN EYE DROPS (BIMATOPROST) (BIMATOPROST) [Concomitant]
  3. LEVOTHYROXINE SODIUM [Concomitant]
  4. CELEBREX [Concomitant]
  5. AMBIEN [Concomitant]
  6. HYDROCHLOROTHIAZIDE (BENZYLHYDROCHLOROTHIAZIDE)(BENZYLHYDROCHLOROTHIAZ [Concomitant]
  7. THEODUR (THEOPHYLLINE) (THEOPHYLLINE) [Concomitant]
  8. ELAVIL (AMITRIPTYLINE HYDROCHLORIDE) (AMITRIPTYLINE HYDROCHLORIDE) [Concomitant]
  9. IMURAN [Concomitant]
  10. PLAQUENIL (HYDROXYCHLOROQUINE PHOSPHATE) (HYDROXYCHLOROQUINE PHOSPHATE [Concomitant]
  11. DIAMOX (ACETAZOLAMIDE) (ACETAZOLAMIDE) [Concomitant]
  12. PREDNISONE [Concomitant]
  13. METHADONE (METHADONE) (METHADONE) [Concomitant]
  14. BENLYSTA [Suspect]
     Indication: SYSTEMIC LUPUS ERYTHEMATOSUS
     Dosage: 10 MG/KG, 1 IN 28 D, INTRAVENOUS DRIP
     Route: 041
     Dates: start: 20120510
  15. FOSAMAX [Concomitant]
  16. NEURONTIN [Concomitant]
  17. OMEPRAZOLE [Concomitant]
  18. CALCIUM WITH VITAMIN D (OS-CAL /00188401/ (ERGOCALCIFEROL, CALCIUM) [Concomitant]

REACTIONS (6)
  - CONTUSION [None]
  - PNEUMONIA [None]
  - CONFUSIONAL STATE [None]
  - FALL [None]
  - LOSS OF CONSCIOUSNESS [None]
  - FEELING ABNORMAL [None]
